FAERS Safety Report 9228083 (Version 1)
Quarter: 2013Q2

REPORT INFORMATION
  Report Type: Spontaneous
  Country: FR (occurrence: FR)
  Receive Date: 20130412
  Receipt Date: 20130412
  Transmission Date: 20140414
  Serious: Yes (Death, Other)
  Sender: FDA-Public Use
  Company Number: FR-CELGENEUS-056-50794-13040306

PATIENT
  Sex: 0

DRUGS (4)
  1. VIDAZA [Suspect]
     Indication: MYELODYSPLASTIC SYNDROME
     Dosage: 75 MILLIGRAM/SQ. METER
     Route: 058
  2. VIDAZA [Suspect]
     Indication: CHRONIC MYELOMONOCYTIC LEUKAEMIA
  3. IDARUBICIN [Concomitant]
     Indication: MYELODYSPLASTIC SYNDROME
     Dosage: ON DAY 8 IN THE FIRST COHORT OF 10 PATIENTS
     Route: 041
  4. IDARUBICIN [Concomitant]
     Dosage: ON DAY 8 IN THE SECOND COHORT OF 10 PATIENTS
     Route: 041

REACTIONS (8)
  - Death [Fatal]
  - Septic shock [Fatal]
  - Myelodysplastic syndrome [Fatal]
  - Pancytopenia [Unknown]
  - Febrile neutropenia [Unknown]
  - Haemorrhage [Unknown]
  - Coma [Fatal]
  - Adverse event [Unknown]
